FAERS Safety Report 9013468 (Version 1)
Quarter: 2013Q1

REPORT INFORMATION
  Report Type: Spontaneous
  Country: US (occurrence: US)
  Receive Date: 20130114
  Receipt Date: 20130114
  Transmission Date: 20140127
  Serious: No
  Sender: FDA-Public Use
  Company Number: US-BAYER-2013-004643

PATIENT
  Sex: 0

DRUGS (3)
  1. ALEVE CAPLET/TABLET,MIDOL EXTENDED RELIEF CAPLET [Suspect]
     Indication: TOOTHACHE
     Dosage: 2 DF, UNK
     Dates: start: 20130105
  2. LORTAB [Concomitant]
  3. CANNABIS SATIVA SUBSP. INDICA TOP [Concomitant]

REACTIONS (2)
  - Feeling abnormal [None]
  - Drug ineffective [None]
